FAERS Safety Report 5480262-2 (Version None)
Quarter: 2007Q4

REPORT INFORMATION
  Report Type: 
  Country: None (occurrence: None)
  Receive Date: 20071009
  Receipt Date: 20070926
  Transmission Date: 20080405
  Serious: Yes (Life-Threatening)
  Sender: FDA-Public Use
  Company Number: FR-BRISTOL-MYERS SQUIBB COMPANY-13929013

PATIENT
  Age: 46 Year
  Sex: Female

DRUGS (2)
  1. ENDOXAN [Suspect]
     Indication: MULTIPLE SCLEROSIS
     Route: 042
     Dates: start: 20060401
  2. MITOXANTRONE [Concomitant]
     Dates: start: 20070105

REACTIONS (5)
  - CYTOMEGALOVIRUS INFECTION [None]
  - EXTRAPYRAMIDAL DISORDER [None]
  - LYMPHOPENIA [None]
  - NEUTROPENIA [None]
  - URINARY TRACT INFECTION [None]
